FAERS Safety Report 8243831-2 (Version None)
Quarter: 2012Q1

REPORT INFORMATION
  Report Type: 
  Country: None (occurrence: None)
  Receive Date: 20120329
  Receipt Date: 20120323
  Transmission Date: 20120608
  Serious: Yes (Other)
  Sender: FDA-Public Use
  Company Number: US-PFIZER INC-2012075378

PATIENT
  Sex: Male
  Weight: 80 kg

DRUGS (5)
  1. XANAX [Concomitant]
     Indication: SLEEP DISORDER
     Dosage: 0.5 MG, AS NEEDED
  2. CHANTIX [Suspect]
     Indication: SMOKING CESSATION THERAPY
     Dosage: 0.5 MG, 1X/DAY
     Route: 048
     Dates: start: 20120313, end: 20120301
  3. CHANTIX [Suspect]
     Dosage: 1 MG, 2X/DAY
     Route: 048
     Dates: start: 20120301
  4. CYMBALTA [Concomitant]
     Dosage: 20 MG, 1X/DAY
  5. ACETYLSALICYLIC ACID [Concomitant]
     Dosage: 81 MG, UNK

REACTIONS (4)
  - INSOMNIA [None]
  - HYPERTENSION [None]
  - ABNORMAL DREAMS [None]
  - ANXIETY [None]
